FAERS Safety Report 6249263-0 (Version None)
Quarter: 2009Q2

REPORT INFORMATION
  Report Type: 
  Country: None (occurrence: None)
  Receive Date: 20090624
  Receipt Date: 20090624
  Transmission Date: 20091009
  Serious: No
  Sender: FDA-Public Use
  Company Number: None

PATIENT
  Age: 45 Year
  Sex: Female
  Weight: 71.6683 kg

DRUGS (2)
  1. LITHIUM CARBONATE [Suspect]
     Indication: BIPOLAR DISORDER
     Dosage: 300 MG TWICE DAILY PO
     Route: 048
     Dates: start: 20081215, end: 20090315
  2. LITHIUM CARBONATE [Suspect]
     Indication: DEPRESSION
     Dosage: 300 MG TWICE DAILY PO
     Route: 048
     Dates: start: 20081215, end: 20090315

REACTIONS (1)
  - DYSKINESIA [None]
